FAERS Safety Report 15713794 (Version 1)
Quarter: 2018Q4

REPORT INFORMATION
  Report Type: Spontaneous
  Country: US (occurrence: US)
  Receive Date: 20181212
  Receipt Date: 20181212
  Transmission Date: 20190205
  Serious: No
  Sender: FDA-Public Use
  Company Number: None

PATIENT
  Age: 6 Year
  Sex: Female
  Weight: 23.4 kg

DRUGS (1)
  1. EUCRISA [Suspect]
     Active Substance: CRISABOROLE
     Dosage: ?          QUANTITY:1 OINTMENT;?
     Route: 061
     Dates: start: 20181206, end: 20181209

REACTIONS (3)
  - Erythema [None]
  - Pain [None]
  - Blister [None]

NARRATIVE: CASE EVENT DATE: 20181210
